FAERS Safety Report 22244769 (Version 2)
Quarter: 2023Q2

REPORT INFORMATION
  Report Type: Other
  Country: US (occurrence: US)
  Receive Date: 20230424
  Receipt Date: 20230503
  Transmission Date: 20230722
  Serious: No
  Sender: FDA-Public Use
  Company Number: US-GBT-021809

PATIENT
  Age: 9 Year
  Sex: Male

DRUGS (1)
  1. OXBRYTA [Suspect]
     Active Substance: VOXELOTOR
     Indication: Sickle cell disease
     Route: 048
     Dates: start: 20220925

REACTIONS (5)
  - Viral infection [Unknown]
  - Vomiting [Unknown]
  - Product dose omission issue [Unknown]
  - Lethargy [Unknown]
  - Product use complaint [Unknown]

NARRATIVE: CASE EVENT DATE: 20230301
